FAERS Safety Report 7107259-0 (Version None)
Quarter: 2010Q4

REPORT INFORMATION
  Report Type: 
  Country: None (occurrence: None)
  Receive Date: 20101116
  Receipt Date: 20100920
  Transmission Date: 20110411
  Serious: No
  Sender: FDA-Public Use
  Company Number: US-ABBOTT-10P-163-0672366-00

PATIENT
  Sex: Female

DRUGS (2)
  1. SIMCOR [Suspect]
     Indication: HIGH DENSITY LIPOPROTEIN DECREASED
     Dosage: 500/20MG AT BEDTIME
     Dates: start: 20100913
  2. DARVOCET [Concomitant]
     Indication: PAIN

REACTIONS (4)
  - FLUSHING [None]
  - MIGRAINE [None]
  - NAUSEA [None]
  - PRURITUS GENERALISED [None]
